FAERS Safety Report 4971440-7 (Version None)
Quarter: 2006Q2

REPORT INFORMATION
  Report Type: 
  Country: None (occurrence: None)
  Receive Date: 20060406
  Receipt Date: 20060324
  Transmission Date: 20061013
  Serious: Yes (Other)
  Sender: FDA-Public Use
  Company Number: 2006EU001016

PATIENT
  Age: 54 Year
  Sex: Female

DRUGS (2)
  1. VESICARE [Suspect]
     Indication: MICTURITION URGENCY
     Dosage: 10 MG, UID/QD, ORAL
     Route: 048
     Dates: start: 20060127, end: 20060127
  2. IMIPRAMINE [Concomitant]

REACTIONS (1)
  - VISUAL DISTURBANCE [None]
